FAERS Safety Report 19627868 (Version 1)
Quarter: 2021Q3

REPORT INFORMATION
  Report Type: Spontaneous
  Country: DE (occurrence: DE)
  Receive Date: 20210729
  Receipt Date: 20210729
  Transmission Date: 20211014
  Serious: Yes (Other)
  Sender: FDA-Public Use
  Company Number: DE-ASTRAZENECA-2021A638806

PATIENT
  Age: 60 Year
  Sex: Female
  Weight: 50 kg

DRUGS (2)
  1. DAXAS [Suspect]
     Active Substance: ROFLUMILAST
     Indication: ASTHMA
     Dosage: 1 TABLET EVENING500UG/INHAL DAILY
     Route: 048
     Dates: start: 20210714
  2. DAXAS [Suspect]
     Active Substance: ROFLUMILAST
     Indication: CHRONIC OBSTRUCTIVE PULMONARY DISEASE
     Dosage: 1 TABLET EVENING500UG/INHAL DAILY
     Route: 048
     Dates: start: 20210714

REACTIONS (4)
  - Dizziness [Unknown]
  - Arrhythmia [Unknown]
  - Heart rate increased [Unknown]
  - Tremor [Unknown]

NARRATIVE: CASE EVENT DATE: 20210717
